FAERS Safety Report 9419438 (Version 2)
Quarter: 2013Q3

REPORT INFORMATION
  Report Type: Spontaneous
  Country: US (occurrence: US)
  Receive Date: 20130725
  Receipt Date: 20130814
  Transmission Date: 20140515
  Serious: Yes (Death)
  Sender: FDA-Public Use
  Company Number: US-PFIZER INC-2013215341

PATIENT
  Age: 88 Year
  Sex: Male

DRUGS (1)
  1. SUTENT [Suspect]
     Indication: RENAL CANCER
     Dosage: 12.5 MG (37.5 MG/D), 3X/DAY (28/42 DAYS)
     Dates: start: 20110628

REACTIONS (5)
  - Spinal fracture [Fatal]
  - Fall [Unknown]
  - Asthenia [Unknown]
  - Disease progression [Unknown]
  - Renal cancer [Unknown]
